FAERS Safety Report 6831151-X (Version None)
Quarter: 2010Q3

REPORT INFORMATION
  Report Type: 
  Country: None (occurrence: None)
  Receive Date: 20100709
  Receipt Date: 20100709
  Transmission Date: 20110219
  Serious: Yes (Life-Threatening)
  Sender: FDA-Public Use
  Company Number: None

PATIENT
  Age: 41 Year
  Sex: Female
  Weight: 81.6475 kg

DRUGS (1)
  1. ABILIFY [Suspect]
     Indication: BIPOLAR DISORDER
     Dosage: 2MG ONCE
     Dates: start: 20090126, end: 20091104

REACTIONS (5)
  - DIABETES MELLITUS [None]
  - EDUCATIONAL PROBLEM [None]
  - NAUSEA [None]
  - VOMITING [None]
  - WEIGHT INCREASED [None]
